FAERS Safety Report 9019133 (Version 1)
Quarter: 2013Q1

REPORT INFORMATION
  Report Type: Spontaneous
  Country: US (occurrence: US)
  Receive Date: 20130118
  Receipt Date: 20130118
  Transmission Date: 20140127
  Serious: Yes (Other)
  Sender: FDA-Public Use
  Company Number: CHPA2013US000905

PATIENT
  Age: 60 Year
  Sex: Male

DRUGS (3)
  1. PRIVATE LABEL [Suspect]
     Indication: SMOKING CESSATION THERAPY
     Dosage: 21 MG DAILY
     Route: 062
  2. NICOTINE [Suspect]
     Dosage: UNK, UNK
     Route: 065
  3. DIURETICS [Concomitant]

REACTIONS (4)
  - Left ventricular failure [Not Recovered/Not Resolved]
  - Treatment noncompliance [Unknown]
  - Expired drug administered [Unknown]
  - Overdose [Unknown]
